FAERS Safety Report 10761014 (Version 1)
Quarter: 2015Q1

REPORT INFORMATION
  Report Type: Report from Study
  Country: US (occurrence: US)
  Receive Date: 20150204
  Receipt Date: 20150204
  Transmission Date: 20150721
  Serious: Yes (Hospitalization, Other)
  Sender: FDA-Public Use
  Company Number: US-EISAI MEDICAL RESEARCH-EC-2014-001268

PATIENT
  Age: 74 Year
  Sex: Female
  Weight: 62 kg

DRUGS (2)
  1. ERIBULIN [Suspect]
     Active Substance: ERIBULIN
     Indication: BREAST CANCER METASTATIC
     Route: 041
     Dates: start: 20140908, end: 20140908
  2. ERIBULIN [Suspect]
     Active Substance: ERIBULIN
     Route: 041
     Dates: start: 20140922

REACTIONS (2)
  - White blood cell count decreased [Recovered/Resolved]
  - Rib fracture [Recovering/Resolving]

NARRATIVE: CASE EVENT DATE: 20140915
